FAERS Safety Report 18925759 (Version 1)
Quarter: 2021Q1

REPORT INFORMATION
  Report Type: Spontaneous
  Country: AU (occurrence: AU)
  Receive Date: 20210222
  Receipt Date: 20210222
  Transmission Date: 20210420
  Serious: Yes (Life-Threatening, Other)
  Sender: FDA-Public Use
  Company Number: AU-PURDUE-USA-2021-0215294

PATIENT
  Age: 65 Year
  Sex: Female

DRUGS (8)
  1. OXYCODONE HYDROCHLORIDE. [Suspect]
     Active Substance: OXYCODONE HYDROCHLORIDE
     Dosage: UNK
     Route: 065
     Dates: end: 201403
  2. KETAMINE [Concomitant]
     Active Substance: KETAMINE
     Indication: PRODUCT USED FOR UNKNOWN INDICATION
     Dosage: UNK
     Dates: start: 201410
  3. CLONIDINE. [Concomitant]
     Active Substance: CLONIDINE
     Indication: HYPERAESTHESIA
     Dosage: TOTAL 300?600 MCG/DAY
     Route: 048
     Dates: start: 201403
  4. OXYCODONE HYDROCHLORIDE. [Suspect]
     Active Substance: OXYCODONE HYDROCHLORIDE
     Indication: PRODUCT USED FOR UNKNOWN INDICATION
     Dosage: UNK
     Route: 065
     Dates: end: 201410
  5. NON?PMN BUPRENORPHINE [Suspect]
     Active Substance: BUPRENORPHINE
     Indication: DRUG USE DISORDER
     Dosage: UNK
     Route: 060
     Dates: start: 201403
  6. CLONIDINE. [Concomitant]
     Active Substance: CLONIDINE
     Indication: PAIN MANAGEMENT
     Dosage: TOTAL DOSES OF 100 MCG/DAY
     Route: 065
     Dates: start: 201410
  7. KETAMINE [Concomitant]
     Active Substance: KETAMINE
     Dosage: 6 MG/HR, UNK
     Route: 042
     Dates: start: 201403
  8. BUPRENORPHINE. [Suspect]
     Active Substance: BUPRENORPHINE
     Indication: DRUG USE DISORDER
     Dosage: UNK
     Route: 062
     Dates: start: 201410

REACTIONS (5)
  - Application site irritation [Unknown]
  - Hyperaesthesia [Unknown]
  - Stress cardiomyopathy [Recovered/Resolved]
  - Drug dependence [Unknown]
  - Pain [Unknown]
